FAERS Safety Report 14766509 (Version 2)
Quarter: 2018Q2

REPORT INFORMATION
  Report Type: Report from Study
  Country: US (occurrence: US)
  Receive Date: 20180416
  Receipt Date: 20180509
  Transmission Date: 20180711
  Serious: Yes (Other)
  Sender: FDA-Public Use
  Company Number: US-ALEXION PHARMACEUTICALS INC.-A201804390

PATIENT
  Sex: Male

DRUGS (3)
  1. SOLIRIS [Suspect]
     Active Substance: ECULIZUMAB
     Indication: PRODUCT USED FOR UNKNOWN INDICATION
     Dosage: 600 MG, QW
     Route: 065
  2. SOLIRIS [Suspect]
     Active Substance: ECULIZUMAB
     Dosage: UNK
     Route: 065
     Dates: start: 20180406
  3. SOLIRIS [Suspect]
     Active Substance: ECULIZUMAB
     Dosage: 900 MG, UNK
     Route: 065
     Dates: end: 20170331

REACTIONS (30)
  - Subdural haematoma [Unknown]
  - Vitamin D deficiency [Unknown]
  - Mean cell volume increased [Unknown]
  - Haematocrit decreased [Unknown]
  - Incorrect dose administered [Unknown]
  - Hypertension [Unknown]
  - Dyslipidaemia [Unknown]
  - Fibrin D dimer increased [Unknown]
  - Mean cell haemoglobin increased [Unknown]
  - Blood bilirubin increased [Unknown]
  - Red blood cell count decreased [Unknown]
  - Staphylococcal bacteraemia [Unknown]
  - Ischaemic stroke [Unknown]
  - Skull fracture [Unknown]
  - Eosinophil count increased [Unknown]
  - Protein total decreased [Unknown]
  - Influenza [Unknown]
  - Pyrexia [Unknown]
  - Cellulitis [Unknown]
  - Rhinovirus infection [Unknown]
  - Norovirus test positive [Unknown]
  - Coxsackie virus test positive [Unknown]
  - Iron overload [Unknown]
  - Red cell distribution width increased [Unknown]
  - Neutrophil count increased [Unknown]
  - Haemoglobin decreased [Unknown]
  - Bacteraemia [Unknown]
  - Thrombocytopenia [Unknown]
  - Wound dehiscence [Unknown]
  - Lymphocyte count decreased [Unknown]
